FAERS Safety Report 14432462 (Version 1)
Quarter: 2018Q1

REPORT INFORMATION
  Report Type: Spontaneous
  Country: FR (occurrence: FR)
  Receive Date: 20180124
  Receipt Date: 20180124
  Transmission Date: 20180509
  Serious: Yes (Life-Threatening, Hospitalization)
  Sender: FDA-Public Use
  Company Number: FR-009507513-1801FRA008268

PATIENT
  Age: 45 Year
  Sex: Male
  Weight: 83 kg

DRUGS (9)
  1. PRAVASTATINENATRIUM SANDOZ [Concomitant]
     Dosage: UNK
  2. LANTUS [Concomitant]
     Active Substance: INSULIN GLARGINE
     Dosage: UNK
  3. PYOSTACINE [Suspect]
     Active Substance: PRISTINAMYCIN
     Indication: RHINORRHOEA
     Dosage: 500 MG, SCORED TABLET
     Route: 048
     Dates: start: 20171220, end: 20171220
  4. OMEPRAZOLE. [Concomitant]
     Active Substance: OMEPRAZOLE
     Dosage: UNK
  5. JANUVIA [Concomitant]
     Active Substance: SITAGLIPTIN PHOSPHATE
     Dosage: UNK
  6. SINGULAIR [Suspect]
     Active Substance: MONTELUKAST SODIUM
     Indication: RHINORRHOEA
     Dosage: 10 MG, FILM COATED TABLET
     Route: 048
     Dates: start: 20171220, end: 20171220
  7. QVAR [Concomitant]
     Active Substance: BECLOMETHASONE DIPROPIONATE
     Dosage: UNK
  8. CARBOCYSTEINE [Suspect]
     Active Substance: CARBOCYSTEINE
     Indication: RHINORRHOEA
     Dosage: UNKNOWN
     Route: 048
     Dates: start: 20171220, end: 20171220
  9. KARDEGIC [Concomitant]
     Active Substance: ASPIRIN DL-LYSINE
     Dosage: UNK

REACTIONS (1)
  - Anaphylactic shock [Recovered/Resolved]

NARRATIVE: CASE EVENT DATE: 20171220
